FAERS Safety Report 11535381 (Version 1)
Quarter: 2015Q3

REPORT INFORMATION
  Report Type: Spontaneous
  Country: BR (occurrence: BR)
  Receive Date: 20150922
  Receipt Date: 20150922
  Transmission Date: 20151125
  Serious: Yes (Hospitalization)
  Sender: FDA-Public Use
  Company Number: BR-ELI_LILLY_AND_COMPANY-BR201509004224

PATIENT
  Sex: Female
  Weight: 62 kg

DRUGS (5)
  1. HUMULIN R [Suspect]
     Active Substance: INSULIN HUMAN
     Indication: PRODUCT USED FOR UNKNOWN INDICATION
     Dosage: 6 IU, EACH MORNING
     Route: 058
     Dates: start: 2005
  2. HUMULIN R [Suspect]
     Active Substance: INSULIN HUMAN
     Dosage: 4 IU, AT LUNCH
     Route: 058
     Dates: start: 2005
  3. HUMULIN N [Suspect]
     Active Substance: INSULIN HUMAN
     Indication: PRODUCT USED FOR UNKNOWN INDICATION
     Dosage: 36 IU, EACH MORNING
     Route: 058
     Dates: start: 2005
  4. HUMULIN N [Suspect]
     Active Substance: INSULIN HUMAN
     Dosage: 14 IU, EACH EVENING
     Route: 058
     Dates: start: 2005
  5. HUMULIN R [Suspect]
     Active Substance: INSULIN HUMAN
     Dosage: 4 IU, AT DINNER
     Route: 058
     Dates: start: 2005

REACTIONS (2)
  - Exposure during pregnancy [Recovered/Resolved]
  - Pancreatitis [Recovered/Resolved]
